FAERS Safety Report 8909268 (Version 1)
Quarter: 2012Q4

REPORT INFORMATION
  Report Type: Spontaneous
  Country: ES (occurrence: None)
  Receive Date: 20121107
  Receipt Date: 20121107
  Transmission Date: 20130627
  Serious: Yes (Death)
  Sender: FDA-Public Use
  Company Number: DSA_60463_2012

PATIENT

DRUGS (4)
  1. FLUOROURACIL [Suspect]
     Indication: COLORECTAL CANCER
     Dosage: every week , (600 mg/m2 on days 1-2, 22 hour continuous infusion, every other week)
     Route: 040
  2. OXALIPLATIN (OXALIPLATIN) [Suspect]
     Indication: COLORECTAL CANCER
     Dosage: on day 1; every other week)
  3. LEUCOVORIN [Suspect]
     Indication: COLORECTAL CANCER
     Dosage: of every two weeks cycle)
  4. ANTIEMETICS AND ANTINAUSEANTS [Concomitant]

REACTIONS (1)
  - Neutropenic sepsis [None]
